FAERS Safety Report 6355580-6 (Version None)
Quarter: 2009Q3

REPORT INFORMATION
  Report Type: 
  Country: None (occurrence: None)
  Receive Date: 20090914
  Receipt Date: 20090908
  Transmission Date: 20100115
  Serious: Yes (Other)
  Sender: FDA-Public Use
  Company Number: US-JNJCH-2009024103

PATIENT
  Age: 50 Year
  Sex: Female
  Weight: 59 kg

DRUGS (6)
  1. ROGAINE 5% FOAM [Suspect]
     Indication: ALOPECIA
     Dosage: TEXT:1/2 CAPFUL TWICE DAILY
     Route: 061
     Dates: start: 20090827, end: 20090904
  2. ROGAINE 5% FOAM [Suspect]
     Route: 061
     Dates: start: 20090827, end: 20090904
  3. ZYRTEC [Concomitant]
     Indication: HYPERSENSITIVITY
     Route: 065
  4. SINGULAIR ^DIECKMANN^ [Concomitant]
     Indication: ASTHMA
     Route: 065
  5. FOSAMAX [Concomitant]
     Indication: OSTEOPOROSIS
     Route: 065
  6. REGLAN [Concomitant]
     Indication: GASTRIC DISORDER
     Route: 065

REACTIONS (4)
  - ASTHMA [None]
  - HAIR TEXTURE ABNORMAL [None]
  - PRODUCT QUALITY ISSUE [None]
  - WRONG DRUG ADMINISTERED [None]
